FAERS Safety Report 4848291-7 (Version None)
Quarter: 2005Q4

REPORT INFORMATION
  Report Type: 
  Country: None (occurrence: None)
  Receive Date: 20051206
  Receipt Date: 20051129
  Transmission Date: 20060501
  Serious: Yes (Death, Hospitalization, Other)
  Sender: FDA-Public Use
  Company Number: 163-20785-05100397

PATIENT
  Age: 62 Year
  Sex: Female

DRUGS (12)
  1. THALOMID [Suspect]
     Indication: MULTIPLE MYELOMA
     Dosage: 200 MG QHS ORAL
     Route: 048
     Dates: start: 20050701, end: 20051003
  2. LISINOPRIL [Concomitant]
  3. ATENOLOL [Concomitant]
  4. LASIX [Concomitant]
  5. LORAZEPAM [Concomitant]
  6. OXYCONTIN [Concomitant]
  7. PREVACID [Concomitant]
  8. DILAUDID [Concomitant]
  9. ANZEMET [Concomitant]
  10. ENDOCET (OXYCOCET) [Concomitant]
  11. LACTULOSE [Concomitant]
  12. VOLTAREN [Concomitant]

REACTIONS (21)
  - ACUTE CORONARY SYNDROME [None]
  - AMMONIA INCREASED [None]
  - ASPARTATE AMINOTRANSFERASE INCREASED [None]
  - ASPIRATION [None]
  - BLOOD URIC ACID INCREASED [None]
  - CANDIDURIA [None]
  - CARDIO-RESPIRATORY ARREST [None]
  - COLLAPSE OF LUNG [None]
  - DIARRHOEA [None]
  - GENERALISED OEDEMA [None]
  - HAEMOGLOBIN DECREASED [None]
  - HYPERKALAEMIA [None]
  - HYPERVENTILATION [None]
  - ISCHAEMIA [None]
  - MALIGNANT NEOPLASM PROGRESSION [None]
  - MULTIPLE MYELOMA [None]
  - PICKWICKIAN SYNDROME [None]
  - RENAL DISORDER [None]
  - RESPIRATORY ARREST [None]
  - SEPSIS [None]
  - STAPHYLOCOCCAL SEPSIS [None]
